FAERS Safety Report 6528267-4 (Version None)
Quarter: 2010Q1

REPORT INFORMATION
  Report Type: 
  Country: None (occurrence: None)
  Receive Date: 20100106
  Receipt Date: 20091228
  Transmission Date: 20100710
  Serious: Yes (Other)
  Sender: FDA-Public Use
  Company Number: BR-JNJFOC-20091207557

PATIENT
  Age: 51 Year
  Sex: Male
  Weight: 81 kg

DRUGS (2)
  1. TYLEX [Suspect]
     Indication: PAIN
     Route: 048
  2. AMITRILINA [Concomitant]
     Indication: FIBROMYALGIA
     Route: 065

REACTIONS (2)
  - AMNESIA [None]
  - WEIGHT DECREASED [None]
